FAERS Safety Report 7005655-3 (Version None)
Quarter: 2010Q3

REPORT INFORMATION
  Report Type: 
  Country: None (occurrence: None)
  Receive Date: 20100921
  Receipt Date: 20100910
  Transmission Date: 20110219
  Serious: Yes (Other)
  Sender: FDA-Public Use
  Company Number: B0669313A

PATIENT
  Age: 51 Year
  Sex: Male
  Weight: 119 kg

DRUGS (4)
  1. AVANDIA [Suspect]
     Indication: DIABETES MELLITUS
     Dosage: 8MG PER DAY
     Route: 048
     Dates: start: 20050101, end: 20070101
  2. GLUCOR [Suspect]
     Indication: DIABETES MELLITUS
     Route: 048
  3. ZOCOR [Concomitant]
  4. KENZEN [Concomitant]

REACTIONS (4)
  - EYE OEDEMA [None]
  - OPTIC ISCHAEMIC NEUROPATHY [None]
  - VISUAL ACUITY REDUCED [None]
  - VITREOUS FLOATERS [None]
